FAERS Safety Report 21556146 (Version 6)
Quarter: 2023Q2

REPORT INFORMATION
  Report Type: Report from Study
  Country: CN (occurrence: CN)
  Receive Date: 20221104
  Receipt Date: 20230421
  Transmission Date: 20230721
  Serious: Yes (Hospitalization)
  Sender: FDA-Public Use
  Company Number: CN-JNJFOC-20221053569

PATIENT
  Age: 60 Year
  Sex: Male
  Weight: 72.8 kg

DRUGS (28)
  1. TECLISTAMAB [Suspect]
     Active Substance: TECLISTAMAB
     Indication: Plasma cell myeloma refractory
     Route: 058
     Dates: start: 20220718, end: 20220928
  2. TECLISTAMAB [Suspect]
     Active Substance: TECLISTAMAB
     Route: 058
  3. TECLISTAMAB [Suspect]
     Active Substance: TECLISTAMAB
     Route: 058
  4. TECLISTAMAB [Suspect]
     Active Substance: TECLISTAMAB
     Dosage: MED KIT NO. 4383863
     Route: 058
     Dates: start: 20220718, end: 20220928
  5. AMLODIPINE [Concomitant]
     Active Substance: AMLODIPINE BESYLATE
     Indication: Hypertension
     Route: 048
     Dates: start: 2010
  6. VALSARTAN [Concomitant]
     Active Substance: VALSARTAN
     Indication: Hypertension
  7. ACARBOSE [Concomitant]
     Active Substance: ACARBOSE
     Indication: Diabetes mellitus
     Dosage: ALSO REPORTED AS 2 CAPSULES TID
     Route: 048
     Dates: start: 20220723
  8. ACARBOSE [Concomitant]
     Active Substance: ACARBOSE
     Indication: Hypoglycaemia
  9. GLIMEPIRIDE [Concomitant]
     Active Substance: GLIMEPIRIDE
     Indication: Product used for unknown indication
     Dosage: DOSE: 2 TABLETS DAILY
     Route: 065
  10. METFORMIN [Concomitant]
     Active Substance: METFORMIN HYDROCHLORIDE
     Indication: Diabetes mellitus
  11. BIFIDIN [Concomitant]
     Indication: Diarrhoea
  12. BERBERINE [Concomitant]
     Active Substance: BERBERINE
     Indication: Diarrhoea
  13. LORATADINE [Concomitant]
     Active Substance: LORATADINE
     Indication: Urticaria
  14. EBASTINE [Concomitant]
     Active Substance: EBASTINE
     Indication: Urticaria
  15. KETOTIFEN [Concomitant]
     Active Substance: KETOTIFEN
     Indication: Cough
  16. MONTELUKAST [Concomitant]
     Active Substance: MONTELUKAST SODIUM
     Indication: Cough
  17. ENTECAVIR [Concomitant]
     Active Substance: ENTECAVIR
     Indication: Prophylaxis
  18. FAMCICLOVIR [Concomitant]
     Active Substance: FAMCICLOVIR
     Indication: Prophylaxis
  19. PREDNISONE [Concomitant]
     Active Substance: PREDNISONE
     Indication: Urticaria
  20. OMEPRAZOLE [Concomitant]
     Active Substance: OMEPRAZOLE
  21. POTASSIUM CHLORIDE [Concomitant]
     Active Substance: POTASSIUM CHLORIDE
     Indication: Hypokalaemia
  22. POTASSIUM CHLORIDE [Concomitant]
     Active Substance: POTASSIUM CHLORIDE
     Dates: start: 20230402
  23. ROSUVASTATIN [Concomitant]
     Active Substance: ROSUVASTATIN
     Indication: Hypertension
  24. INSULIN NOS [Concomitant]
     Active Substance: INSULIN NOS
     Indication: Diabetes mellitus
  25. LIDOCAINE [Concomitant]
     Active Substance: LIDOCAINE
  26. ACETAMINOPHEN [Concomitant]
     Active Substance: ACETAMINOPHEN
     Indication: Neuralgia
  27. PLANT ALKALOIDS AND OTHER NATURAL PRODUCTS [Concomitant]
     Indication: Aspartate aminotransferase increased
  28. PLANT ALKALOIDS AND OTHER NATURAL PRODUCTS [Concomitant]
     Indication: Aspartate aminotransferase increased

REACTIONS (2)
  - Pneumonia [Recovered/Resolved]
  - COVID-19 [Recovered/Resolved]

NARRATIVE: CASE EVENT DATE: 20221006
